FAERS Safety Report 26084192 (Version 2)
Quarter: 2025Q4

REPORT INFORMATION
  Report Type: Report from Study
  Country: EU (occurrence: EU)
  Receive Date: 20251124
  Receipt Date: 20251230
  Transmission Date: 20260118
  Serious: Yes (Other)
  Sender: MYLAN
  Company Number: EU-AstraZeneca-CH-00980198A

PATIENT
  Sex: Female

DRUGS (16)
  1. PACLITAXEL [Suspect]
     Active Substance: PACLITAXEL
     Indication: Endometrial cancer recurrent
     Dosage: UNK
  2. PACLITAXEL [Suspect]
     Active Substance: PACLITAXEL
     Dosage: UNK
     Route: 065
  3. PACLITAXEL [Suspect]
     Active Substance: PACLITAXEL
     Dosage: UNK
     Route: 065
  4. PACLITAXEL [Suspect]
     Active Substance: PACLITAXEL
     Dosage: UNK
  5. IMFINZI [Suspect]
     Active Substance: DURVALUMAB
     Indication: Endometrial cancer recurrent
     Dosage: 1120 MILLIGRAM, Q3W (1120 MILLIGRAM, Q3W) (DOSAGE1)
     Route: 042
     Dates: start: 20250507
  6. IMFINZI [Suspect]
     Active Substance: DURVALUMAB
     Dosage: 1120 MILLIGRAM, Q3W (1120 MILLIGRAM, Q3W) (DOSAGE1)
     Dates: start: 20250507
  7. IMFINZI [Suspect]
     Active Substance: DURVALUMAB
     Dosage: 1120 MILLIGRAM, Q3W (1120 MILLIGRAM, Q3W) (DOSAGE1)
     Dates: start: 20250507
  8. IMFINZI [Suspect]
     Active Substance: DURVALUMAB
     Dosage: 1120 MILLIGRAM, Q3W (1120 MILLIGRAM, Q3W) (DOSAGE1)
     Route: 042
     Dates: start: 20250507
  9. IMFINZI [Suspect]
     Active Substance: DURVALUMAB
     Dosage: 1120 MILLIGRAM, Q3W (1120 MILLIGRAM, Q3W) (DOSAGE1)
     Route: 042
     Dates: start: 20250508, end: 20250620
  10. IMFINZI [Suspect]
     Active Substance: DURVALUMAB
     Dosage: 1120 MILLIGRAM, Q3W (1120 MILLIGRAM, Q3W) (DOSAGE1)
     Dates: start: 20250508, end: 20250620
  11. IMFINZI [Suspect]
     Active Substance: DURVALUMAB
     Dosage: 1120 MILLIGRAM, Q3W (1120 MILLIGRAM, Q3W) (DOSAGE1)
     Dates: start: 20250508, end: 20250620
  12. IMFINZI [Suspect]
     Active Substance: DURVALUMAB
     Dosage: 1120 MILLIGRAM, Q3W (1120 MILLIGRAM, Q3W) (DOSAGE1)
     Route: 042
     Dates: start: 20250508, end: 20250620
  13. CARBOPLATIN [Suspect]
     Active Substance: CARBOPLATIN
     Indication: Endometrial cancer recurrent
     Dosage: UNK
  14. CARBOPLATIN [Suspect]
     Active Substance: CARBOPLATIN
     Dosage: UNK
     Route: 065
  15. CARBOPLATIN [Suspect]
     Active Substance: CARBOPLATIN
     Dosage: UNK
     Route: 065
  16. CARBOPLATIN [Suspect]
     Active Substance: CARBOPLATIN
     Dosage: UNK

REACTIONS (2)
  - Second primary malignancy [Unknown]
  - Neoplasm malignant [Unknown]
